FAERS Safety Report 23427767 (Version 1)
Quarter: 2024Q1

REPORT INFORMATION
  Report Type: Spontaneous
  Country: FR (occurrence: FR)
  Receive Date: 20240122
  Receipt Date: 20240122
  Transmission Date: 20240409
  Serious: Yes (Other)
  Sender: FDA-Public Use
  Company Number: None

PATIENT
  Age: 47 Year
  Sex: Female
  Weight: 62 kg

DRUGS (2)
  1. VALIUM [Suspect]
     Active Substance: DIAZEPAM
     Indication: Insomnia
     Dosage: 7,5 MG/J
     Route: 050
     Dates: start: 20230810, end: 20231217
  2. VALIUM [Suspect]
     Active Substance: DIAZEPAM
     Indication: Middle insomnia

REACTIONS (3)
  - Enuresis [Recovered/Resolved]
  - Nightmare [Recovered/Resolved]
  - Amnesia [Recovered/Resolved]

NARRATIVE: CASE EVENT DATE: 20230910
